FAERS Safety Report 11104359 (Version 1)
Quarter: 2015Q2

REPORT INFORMATION
  Report Type: Spontaneous
  Country: US (occurrence: US)
  Receive Date: 20150511
  Receipt Date: 20150511
  Transmission Date: 20150821
  Serious: No
  Sender: FDA-Public Use
  Company Number: US-BAYER-2015-192680

PATIENT
  Age: 77 Year
  Sex: Female
  Weight: 50.79 kg

DRUGS (4)
  1. MIRALAX [Suspect]
     Active Substance: POLYETHYLENE GLYCOL 3350
     Indication: CONSTIPATION
     Dosage: 1 DOSE, QD
     Route: 048
     Dates: start: 20150412
  2. MAGNESIUM [MAGNESIUM] [Concomitant]
     Dosage: UNK
  3. PREMPRO [Concomitant]
     Active Substance: ESTROGENS, CONJUGATED\MEDROXYPROGESTERONE ACETATE
  4. POTASSIUM [POTASSIUM] [Concomitant]

REACTIONS (1)
  - Incorrect drug administration duration [Unknown]

NARRATIVE: CASE EVENT DATE: 20150412
